FAERS Safety Report 5605487-4 (Version None)
Quarter: 2008Q1

REPORT INFORMATION
  Report Type: 
  Country: None (occurrence: None)
  Receive Date: 20080124
  Receipt Date: 20080124
  Transmission Date: 20080703
  Serious: Yes (Hospitalization)
  Sender: FDA-Public Use
  Company Number: None

PATIENT
  Age: 58 Year
  Sex: Male

DRUGS (1)
  1. LINEZOLID [Suspect]
     Indication: STAPHYLOCOCCAL BACTERAEMIA
     Dosage: 600MG BID PO
     Route: 048
     Dates: start: 20071226, end: 20071231

REACTIONS (2)
  - RASH [None]
  - THROMBOCYTOPENIA [None]
